FAERS Safety Report 19906850 (Version 1)
Quarter: 2021Q4

REPORT INFORMATION
  Report Type: Spontaneous
  Country: CA (occurrence: CA)
  Receive Date: 20211001
  Receipt Date: 20211001
  Transmission Date: 20220303
  Serious: Yes (Hospitalization)
  Sender: FDA-Public Use
  Company Number: 2021A754674

PATIENT
  Age: 72 Year
  Sex: Female
  Weight: 48 kg

DRUGS (8)
  1. OMEPRAZOLE [Suspect]
     Active Substance: OMEPRAZOLE
     Route: 048
     Dates: start: 20210430, end: 20210430
  2. MIDAZOLAM [Suspect]
     Active Substance: MIDAZOLAM
     Dosage: 2 MG, (DAY 7 AND DAY 1)
     Route: 048
     Dates: start: 20210430, end: 20210430
  3. MIDAZOLAM [Suspect]
     Active Substance: MIDAZOLAM
     Dosage: 2 MG, (DAY 7 AND DAY 1)
     Route: 048
     Dates: start: 20210507, end: 20210507
  4. BINIMETINIB [Suspect]
     Active Substance: BINIMETINIB
     Route: 065
  5. CAFFEINE [Suspect]
     Active Substance: CAFFEINE
     Route: 065
  6. COZAAR [Suspect]
     Active Substance: LOSARTAN POTASSIUM
     Route: 065
  7. DEXTROMETHORPHAN [Suspect]
     Active Substance: DEXTROMETHORPHAN
     Route: 065
  8. ENCORAFENIB [Suspect]
     Active Substance: ENCORAFENIB
     Route: 065

REACTIONS (7)
  - Chills [Recovered/Resolved]
  - Pyrexia [Recovered/Resolved]
  - Vomiting [Unknown]
  - Asthenia [Unknown]
  - Hypoaesthesia [Unknown]
  - Fatigue [Not Recovered/Not Resolved]
  - Faeces soft [Not Recovered/Not Resolved]

NARRATIVE: CASE EVENT DATE: 20210517
